FAERS Safety Report 8797819 (Version 2)
Quarter: 2012Q4

REPORT INFORMATION
  Report Type: 
  Country: GB (occurrence: US)
  Receive Date: 20120920
  Receipt Date: 20121009
  Transmission Date: 20130627
  Serious: No
  Sender: FDA-Public Use
  Company Number: US-009507513-1208USA004211

PATIENT
  Sex: Male

DRUGS (3)
  1. VICTRELIS [Suspect]
     Indication: HEPATITIS C
     Dosage: UNK
     Dates: start: 20120617
  2. PEGASYS [Suspect]
     Indication: HEPATITIS C
     Dosage: 1400 mg, qd, evenry sunday evening
     Route: 048
     Dates: start: 20120507
  3. COPEGUS [Suspect]
     Indication: HEPATITIS C
     Dosage: 180 Microgram, qw, pre-filled syringe
     Route: 058
     Dates: start: 20120507

REACTIONS (11)
  - Influenza like illness [Unknown]
  - Photosensitivity reaction [Unknown]
  - Fatigue [Unknown]
  - Dizziness [Unknown]
  - Irritability [Unknown]
  - Anger [Unknown]
  - Dizziness [Unknown]
  - Dizziness [Unknown]
  - Visual impairment [Unknown]
  - Haemoglobin decreased [Unknown]
  - Syncope [Unknown]
